FAERS Safety Report 5330395-6 (Version None)
Quarter: 2007Q2

REPORT INFORMATION
  Report Type: 
  Country: None (occurrence: None)
  Receive Date: 20070521
  Receipt Date: 20070515
  Transmission Date: 20071010
  Serious: Yes (Hospitalization)
  Sender: FDA-Public Use
  Company Number: US-ROXANE LABORATORIES, INC-2007-BP-06591RO

PATIENT
  Age: 11 Year
  Sex: Male

DRUGS (5)
  1. LITHIUM CARBONATE [Suspect]
     Indication: POST-TRAUMATIC STRESS DISORDER
     Route: 048
  2. CHLORPROMAZINE [Suspect]
     Indication: POST-TRAUMATIC STRESS DISORDER
     Route: 048
  3. BENZTROPINE [Suspect]
     Indication: TREMOR
     Route: 048
  4. RISPERIDONE [Suspect]
     Indication: POST-TRAUMATIC STRESS DISORDER
     Route: 048
  5. VALPROIC ACID [Suspect]
     Indication: POST-TRAUMATIC STRESS DISORDER
     Route: 048

REACTIONS (12)
  - ANTICHOLINERGIC SYNDROME [None]
  - COGWHEEL RIGIDITY [None]
  - CONFUSIONAL STATE [None]
  - DRY MOUTH [None]
  - DRY SKIN [None]
  - FATIGUE [None]
  - HYPOKINESIA [None]
  - MALAISE [None]
  - ORAL CANDIDIASIS [None]
  - SOMNOLENCE [None]
  - TACHYCARDIA [None]
  - TREMOR [None]
